FAERS Safety Report 19710943 (Version 1)
Quarter: 2021Q3

REPORT INFORMATION
  Report Type: Spontaneous
  Country: GB (occurrence: GB)
  Receive Date: 20210817
  Receipt Date: 20210817
  Transmission Date: 20211014
  Serious: Yes (Life-Threatening, Disabling)
  Sender: FDA-Public Use
  Company Number: GB-MYLANLABS-2021M1051370

PATIENT
  Age: 42 Year
  Sex: Female
  Weight: 81 kg

DRUGS (8)
  1. FERROUS FUMARATE [Concomitant]
     Active Substance: FERROUS FUMARATE
     Indication: ILL-DEFINED DISORDER
     Dosage: UNK
  2. QVAR [Concomitant]
     Active Substance: BECLOMETHASONE DIPROPIONATE
     Indication: ILL-DEFINED DISORDER
     Dosage: UNK
  3. VORTIOXETINE. [Concomitant]
     Active Substance: VORTIOXETINE
     Indication: ILL-DEFINED DISORDER
     Dosage: UNK
  4. MONTELUKAST [Suspect]
     Active Substance: MONTELUKAST SODIUM
     Indication: ASTHMA
     Dosage: UNK
     Route: 048
     Dates: end: 20210810
  5. PANTOPRAZOLE [Concomitant]
     Active Substance: PANTOPRAZOLE
     Indication: ILL-DEFINED DISORDER
     Dosage: UNK
  6. SALBUTAMOL [Concomitant]
     Active Substance: ALBUTEROL
     Indication: ILL-DEFINED DISORDER
     Dosage: UNK
  7. VERAPAMIL [Concomitant]
     Active Substance: VERAPAMIL HYDROCHLORIDE
     Indication: ILL-DEFINED DISORDER
     Dosage: UNK
  8. LEVOTHYROXINE. [Concomitant]
     Active Substance: LEVOTHYROXINE
     Indication: ILL-DEFINED DISORDER
     Dosage: UNK

REACTIONS (2)
  - Abnormal dreams [Unknown]
  - Depression suicidal [Recovering/Resolving]

NARRATIVE: CASE EVENT DATE: 20210809
